FAERS Safety Report 6821074-4 (Version None)
Quarter: 2010Q3

REPORT INFORMATION
  Report Type: 
  Country: None (occurrence: None)
  Receive Date: 20100707
  Receipt Date: 20071023
  Transmission Date: 20110219
  Serious: No
  Sender: FDA-Public Use
  Company Number: US-PFIZER INC-2007089745

PATIENT
  Age: 26 Year
  Sex: Male
  Weight: 92.99 kg

DRUGS (2)
  1. ZOLOFT [Suspect]
     Dates: end: 20071001
  2. ADDERALL XR 10 [Interacting]
     Dates: start: 20070501

REACTIONS (3)
  - DEPRESSION [None]
  - DISTURBANCE IN ATTENTION [None]
  - DRUG INTERACTION [None]
